FAERS Safety Report 13180806 (Version 1)
Quarter: 2017Q1

REPORT INFORMATION
  Report Type: Spontaneous
  Country: US (occurrence: US)
  Receive Date: 20170202
  Receipt Date: 20170202
  Transmission Date: 20170428
  Serious: No
  Sender: FDA-Public Use
  Company Number: US-SMITH AND NEPHEW, INC-2016SMT00463

PATIENT
  Sex: Female
  Weight: 108.84 kg

DRUGS (4)
  1. REGRANEX [Suspect]
     Active Substance: BECAPLERMIN
     Indication: WOUND
     Dosage: UNK UNK, 1X/DAY
     Route: 061
     Dates: start: 201604, end: 201605
  2. LANTUS [Concomitant]
     Active Substance: INSULIN GLARGINE
  3. TEGRETOL [Concomitant]
     Active Substance: CARBAMAZEPINE
  4. UNSPECIFIED MEDICATION FOR HYPERTENSION [Concomitant]

REACTIONS (1)
  - Drug ineffective [Unknown]

NARRATIVE: CASE EVENT DATE: 2016
